FAERS Safety Report 5008129-4 (Version None)
Quarter: 2006Q2

REPORT INFORMATION
  Report Type: 
  Country: None (occurrence: None)
  Receive Date: 20060517
  Receipt Date: 20060511
  Transmission Date: 20061013
  Serious: Yes (Death, Hospitalization)
  Sender: FDA-Public Use
  Company Number: 200610254BFR

PATIENT
  Age: 76 Year
  Sex: Male

DRUGS (15)
  1. CIPROFLOXACIN HCL [Suspect]
     Indication: SUPERINFECTION
     Dosage: 500 MG, BID, ORAL
     Route: 048
     Dates: start: 20051201, end: 20060211
  2. CIPROFLOXACIN HCL [Suspect]
     Indication: WOUND INFECTION
     Dosage: 500 MG, BID, ORAL
     Route: 048
     Dates: start: 20051201, end: 20060211
  3. REPAGLINIDE [Suspect]
     Dosage: ORAL
     Route: 048
     Dates: start: 20060120, end: 20060211
  4. HALDOL [Suspect]
     Dosage: QD, ORAL
     Route: 048
     Dates: start: 20060131
  5. PREDNISONE TAB [Suspect]
     Dosage: 30 MG, QD, ORAL
     Route: 048
     Dates: start: 20060207
  6. FLUCONAZOLE [Suspect]
     Dosage: SEE IMAGE
     Dates: start: 20060107, end: 20060116
  7. FLUCONAZOLE [Suspect]
     Dosage: SEE IMAGE
     Dates: start: 20060116, end: 20060211
  8. FORTUM [Concomitant]
  9. AMIKLIN [Concomitant]
  10. ZYVOXID [Concomitant]
  11. ZELITREX [Concomitant]
  12. NEXIUM [Concomitant]
  13. NOVORAPID [Concomitant]
  14. LANTUS [Concomitant]
  15. IMUREL [Concomitant]

REACTIONS (6)
  - CARDIAC FAILURE [None]
  - DRUG LEVEL ABOVE THERAPEUTIC [None]
  - HEPATITIS [None]
  - METABOLIC ACIDOSIS [None]
  - RENAL FAILURE [None]
  - RESPIRATORY FAILURE [None]
